FAERS Safety Report 5112880-5 (Version None)
Quarter: 2006Q3

REPORT INFORMATION
  Report Type: 
  Country: None (occurrence: None)
  Receive Date: 20060921
  Receipt Date: 20060921
  Transmission Date: 20061208
  Serious: Yes (Hospitalization)
  Sender: FDA-Public Use
  Company Number: None

PATIENT
  Age: 83 Year
  Sex: Male
  Weight: 100.7 kg

DRUGS (2)
  1. WARFARIN SODIUM [Suspect]
     Dosage: 5 MG QD PO [SEVERAL YEARS]
     Route: 048
  2. FLUCONAZOLE [Suspect]
     Dosage: 200 MG QD PO
     Route: 048

REACTIONS (2)
  - FALL [None]
  - INTERNATIONAL NORMALISED RATIO INCREASED [None]
